FAERS Safety Report 9920142 (Version 2)
Quarter: 2014Q1

REPORT INFORMATION
  Report Type: Report from Study
  Country: NL (occurrence: NL)
  Receive Date: 20140224
  Receipt Date: 20140319
  Transmission Date: 20141002
  Serious: Yes (Death)
  Sender: FDA-Public Use
  Company Number: PHHY2014NL021866

PATIENT
  Sex: Male

DRUGS (7)
  1. ZOMETA [Suspect]
     Indication: PLASMA CELL MYELOMA
     Dosage: 4 MG/100 ML, ONCE EVERY 4 WEEKS
     Route: 042
  2. ZOMETA [Suspect]
     Dosage: 4 MG/100 ML, ONCE EVERY 4 WEEKS
     Route: 042
     Dates: start: 20130909
  3. ZOMETA [Suspect]
     Dosage: 4 MG/100 ML, ONCE EVERY 4 WEEKS
     Route: 042
     Dates: start: 20131206
  4. ZOMETA [Suspect]
     Dosage: 4 MG/100 ML, ONCE EVERY 4 WEEKS
     Route: 042
     Dates: start: 20140109
  5. ZOMETA [Suspect]
     Dosage: 4 MG/100 ML, ONCE EVERY 4 WEEKS
     Route: 042
     Dates: start: 20140207
  6. FENTANYL [Concomitant]
     Dosage: UNK UKN, UNK
     Route: 058
  7. PENTAZOLE//PANTOPRAZOLE [Concomitant]
     Dosage: UNK UKN, UNK

REACTIONS (5)
  - Pneumonia [Fatal]
  - Respiratory failure [Fatal]
  - Hypercalcaemia [Fatal]
  - Plasma cell myeloma [Fatal]
  - Malignant neoplasm progression [Fatal]
